FAERS Safety Report 17114711 (Version 1)
Quarter: 2019Q4

REPORT INFORMATION
  Report Type: Spontaneous
  Country: GB (occurrence: GB)
  Receive Date: 20191205
  Receipt Date: 20191205
  Transmission Date: 20200122
  Serious: Yes (Hospitalization)
  Sender: FDA-Public Use
  Company Number: GB-ACCORD-163071

PATIENT
  Age: 63 Year
  Sex: Female
  Weight: 77 kg

DRUGS (11)
  1. ATORVASTATIN/ATORVASTATIN CALCIUM [Suspect]
     Active Substance: ATORVASTATIN CALCIUM
     Indication: ISCHAEMIC HEART DISEASE PROPHYLAXIS
     Route: 048
     Dates: start: 20191001, end: 20191022
  2. NITROFURANTOIN/NITROFURANTOIN SODIUM [Concomitant]
     Active Substance: NITROFURANTOIN
  3. PROCYCLIDINE [Concomitant]
     Active Substance: PROCYCLIDINE
  4. ASPIRIN. [Concomitant]
     Active Substance: ASPIRIN
  5. CLOPIDOGREL [Concomitant]
     Active Substance: CLOPIDOGREL BISULFATE
  6. LEVOTHYROXINE. [Concomitant]
     Active Substance: LEVOTHYROXINE
  7. SERTRALINE [Concomitant]
     Active Substance: SERTRALINE HYDROCHLORIDE
  8. BISOPROLOL [Concomitant]
     Active Substance: BISOPROLOL
  9. RAMIPRIL. [Concomitant]
     Active Substance: RAMIPRIL
  10. VALPROIC ACID. [Concomitant]
     Active Substance: VALPROIC ACID
  11. RISPERIDONE. [Concomitant]
     Active Substance: RISPERIDONE
     Indication: SCHIZOPHRENIA
     Route: 048

REACTIONS (13)
  - Decreased appetite [Recovering/Resolving]
  - Mouth haemorrhage [Recovering/Resolving]
  - Haematuria [Recovering/Resolving]
  - Malaise [Recovering/Resolving]
  - Lethargy [Recovering/Resolving]
  - Wrong dose [Unknown]
  - Myalgia [Recovering/Resolving]
  - Pancytopenia [Recovering/Resolving]
  - Jaundice cholestatic [Recovering/Resolving]
  - Bone marrow failure [Recovering/Resolving]
  - Thrombocytopenia [Recovering/Resolving]
  - Hepatic function abnormal [Recovering/Resolving]
  - Rhabdomyolysis [Recovering/Resolving]

NARRATIVE: CASE EVENT DATE: 20191022
